FAERS Safety Report 12671924 (Version 1)
Quarter: 2016Q3

REPORT INFORMATION
  Report Type: Spontaneous
  Country: US (occurrence: None)
  Receive Date: 20160819
  Receipt Date: 20160819
  Transmission Date: 20161109
  Serious: No
  Sender: FDA-Public Use
  Company Number: None

PATIENT
  Age: 21 Year
  Sex: Female

DRUGS (1)
  1. MIRENA [Suspect]
     Active Substance: LEVONORGESTREL

REACTIONS (12)
  - Ovarian cyst [None]
  - Depression [None]
  - Weight increased [None]
  - Device dislocation [None]
  - Adnexa uteri pain [None]
  - Chills [None]
  - Appendix disorder [None]
  - Cyst [None]
  - Alopecia [None]
  - Pyrexia [None]
  - Acne [None]
  - Feeling abnormal [None]

NARRATIVE: CASE EVENT DATE: 201407
